FAERS Safety Report 4635735-9 (Version None)
Quarter: 2005Q2

REPORT INFORMATION
  Report Type: 
  Country: None (occurrence: None)
  Receive Date: 20050414
  Receipt Date: 20050324
  Transmission Date: 20051028
  Serious: Yes (Hospitalization)
  Sender: FDA-Public Use
  Company Number: MED000043

PATIENT

DRUGS (1)
  1. LIDOCAINE HCL 0.1% AND DEXTROSE 5% [Suspect]
     Indication: ANGIOPLASTY
     Dosage: INTRAVENOUS

REACTIONS (3)
  - CONVULSION [None]
  - MEDICATION ERROR [None]
  - OVERDOSE [None]
